FAERS Safety Report 25218781 (Version 10)
Quarter: 2025Q3

REPORT INFORMATION
  Report Type: Report from Study
  Country: EU (occurrence: EU)
  Receive Date: 20250421
  Receipt Date: 20250926
  Transmission Date: 20251020
  Serious: Yes (Hospitalization, Other)
  Sender: TAKEDA
  Company Number: EU-TAKEDA-2023TUS006649

PATIENT
  Age: 70 Year
  Sex: Male

DRUGS (21)
  1. TEDUGLUTIDE [Suspect]
     Active Substance: TEDUGLUTIDE
     Indication: Short-bowel syndrome
     Dosage: 0.34 MILLILITER, QD
     Dates: start: 20220523
  2. TEDUGLUTIDE [Suspect]
     Active Substance: TEDUGLUTIDE
     Dosage: 0.34 MILLILITER, QD
     Dates: start: 202205
  3. TEDUGLUTIDE [Suspect]
     Active Substance: TEDUGLUTIDE
     Dosage: 0.34 MILLILITER, QD
  4. TEDUGLUTIDE [Suspect]
     Active Substance: TEDUGLUTIDE
     Dosage: 0.34 MILLILITER, QD
  5. TEDUGLUTIDE [Suspect]
     Active Substance: TEDUGLUTIDE
     Dosage: 0.34 MILLILITER, QD
  6. TEDUGLUTIDE [Suspect]
     Active Substance: TEDUGLUTIDE
     Dosage: 0.34 MILLILITER, QD
  7. TEDUGLUTIDE [Suspect]
     Active Substance: TEDUGLUTIDE
     Dosage: 0.34 MILLILITER, QD
  8. TEDUGLUTIDE [Suspect]
     Active Substance: TEDUGLUTIDE
     Dosage: 0.34 MILLILITER, QD
  9. TEDUGLUTIDE [Suspect]
     Active Substance: TEDUGLUTIDE
     Dosage: 0.34 MILLILITER, QD
  10. TEDUGLUTIDE [Suspect]
     Active Substance: TEDUGLUTIDE
     Dosage: 0.34 MILLILITER, QD
  11. TEDUGLUTIDE [Suspect]
     Active Substance: TEDUGLUTIDE
     Dosage: 0.34 MILLILITER, QD
  12. TEDUGLUTIDE [Suspect]
     Active Substance: TEDUGLUTIDE
     Dosage: 0.34 MILLILITER, QD
  13. TEDUGLUTIDE [Suspect]
     Active Substance: TEDUGLUTIDE
     Dosage: 0.34 MILLILITER, QD
  14. TEDUGLUTIDE [Suspect]
     Active Substance: TEDUGLUTIDE
     Dosage: 0.34 MILLILITER, QD
  15. TEDUGLUTIDE [Suspect]
     Active Substance: TEDUGLUTIDE
     Dosage: 0.34 MILLILITER, QD
     Dates: end: 20250304
  16. TEDUGLUTIDE [Suspect]
     Active Substance: TEDUGLUTIDE
     Dosage: 0.34 MILLILITER, QD
  17. TEDUGLUTIDE [Suspect]
     Active Substance: TEDUGLUTIDE
     Dosage: 0.34 MILLILITER, QD
  18. TEDUGLUTIDE [Suspect]
     Active Substance: TEDUGLUTIDE
     Dosage: 0.34 MILLILITER, QD
  19. TEDUGLUTIDE [Suspect]
     Active Substance: TEDUGLUTIDE
     Dosage: 0.34 MILLILITER, QD
  20. TEDUGLUTIDE [Suspect]
     Active Substance: TEDUGLUTIDE
     Dosage: 0.34 MILLILITER, QD
  21. INFLUENZA VIRUS VACCINE [Suspect]
     Active Substance: INFLUENZA VIRUS VACCINE
     Indication: Product used for unknown indication

REACTIONS (52)
  - Benign neoplasm [Unknown]
  - Pyelocaliectasis [Not Recovered/Not Resolved]
  - Hypertensive crisis [Recovered/Resolved]
  - Constipation [Recovered/Resolved]
  - Anuria [Recovering/Resolving]
  - Gastrointestinal polyp [Recovered/Resolved]
  - Abdominal pain [Recovered/Resolved]
  - Flank pain [Not Recovered/Not Resolved]
  - Urine output decreased [Not Recovered/Not Resolved]
  - Iron deficiency [Recovering/Resolving]
  - Magnesium deficiency [Unknown]
  - Calculus urinary [Unknown]
  - Device occlusion [Recovering/Resolving]
  - Insomnia [Recovering/Resolving]
  - Prostatic calcification [Unknown]
  - Myalgia [Recovered/Resolved]
  - Arthralgia [Not Recovered/Not Resolved]
  - Heat exhaustion [Not Recovered/Not Resolved]
  - Asthenia [Recovering/Resolving]
  - Sciatica [Recovered/Resolved]
  - Pain in extremity [Not Recovered/Not Resolved]
  - Stoma site reaction [Recovering/Resolving]
  - Hyperhidrosis [Recovered/Resolved]
  - Diarrhoea [Recovered/Resolved]
  - Increased bronchial secretion [Recovering/Resolving]
  - Product preparation error [Recovered/Resolved]
  - Tracheitis [Recovering/Resolving]
  - Product dose omission in error [Recovered/Resolved]
  - Dizziness postural [Recovering/Resolving]
  - Renal colic [Recovered/Resolved]
  - Blood creatinine abnormal [Recovering/Resolving]
  - Blood triglycerides abnormal [Recovering/Resolving]
  - Blood magnesium abnormal [Recovering/Resolving]
  - Blood folate abnormal [Recovering/Resolving]
  - Product expiration date issue [Unknown]
  - Gastrointestinal tract adenoma [Recovering/Resolving]
  - Blood pressure abnormal [Recovering/Resolving]
  - Cystitis [Recovered/Resolved with Sequelae]
  - Ureteral disorder [Recovered/Resolved with Sequelae]
  - Prostatomegaly [Recovered/Resolved with Sequelae]
  - Post procedural complication [Recovering/Resolving]
  - Strangury [Recovered/Resolved with Sequelae]
  - Rectal discharge [Recovered/Resolved with Sequelae]
  - Muscle fatigue [Recovering/Resolving]
  - Blood pressure decreased [Recovered/Resolved]
  - Product dose omission issue [Unknown]
  - Influenza [Recovering/Resolving]
  - Influenza like illness [Recovered/Resolved]
  - Nasopharyngitis [Recovered/Resolved]
  - Cough [Recovering/Resolving]
  - Nausea [Recovered/Resolved]
  - Abdominal distension [Unknown]

NARRATIVE: CASE EVENT DATE: 20230523
